FAERS Safety Report 15080444 (Version 1)
Quarter: 2018Q2

REPORT INFORMATION
  Report Type: Spontaneous
  Country: DE (occurrence: DE)
  Receive Date: 20180628
  Receipt Date: 20180628
  Transmission Date: 20180711
  Serious: Yes (Other)
  Sender: FDA-Public Use
  Company Number: DE-SUN PHARMACEUTICAL INDUSTRIES LTD-2018RR-176843

PATIENT

DRUGS (1)
  1. CIPROFLOXACIN. [Suspect]
     Active Substance: CIPROFLOXACIN
     Indication: SINUSITIS
     Dosage: UNK
     Route: 048
     Dates: start: 198801

REACTIONS (14)
  - Inflammatory bowel disease [Unknown]
  - Haematoma [Unknown]
  - Blister [Unknown]
  - Asthenia [Recovering/Resolving]
  - Chills [Unknown]
  - Myalgia [Unknown]
  - Headache [Unknown]
  - Neurological symptom [Unknown]
  - Bone pain [Unknown]
  - Weight decreased [Unknown]
  - Dizziness [Unknown]
  - Arthralgia [Unknown]
  - Nausea [Recovering/Resolving]
  - Oropharyngeal pain [Unknown]

NARRATIVE: CASE EVENT DATE: 198802
